FAERS Safety Report 10436232 (Version 1)
Quarter: 2014Q3

REPORT INFORMATION
  Report Type: Report from Study
  Country: DE (occurrence: DE)
  Receive Date: 20140908
  Receipt Date: 20140908
  Transmission Date: 20150326
  Serious: Yes (Death)
  Sender: FDA-Public Use
  Company Number: DE-BAYER-2014-131280

PATIENT
  Age: 78 Year
  Sex: Female

DRUGS (9)
  1. STIVARGA [Suspect]
     Active Substance: REGORAFENIB
     Indication: COLORECTAL CANCER METASTATIC
     Dosage: 80 MG DAILY
     Dates: start: 20140710, end: 20140825
  2. STIVARGA [Suspect]
     Active Substance: REGORAFENIB
     Indication: COLORECTAL CANCER METASTATIC
     Dosage: 80 MG DAILY
     Dates: start: 20140523, end: 20140605
  3. ATACAND [Concomitant]
     Active Substance: CANDESARTAN CILEXETIL
     Dosage: 32 MG DAILY
     Dates: start: 20100101
  4. MOVICOL [MACROGOL,POTASSIUM CHLORIDE,SODIUM BICARBONATE] [Concomitant]
     Dosage: 1
     Dates: start: 20130314
  5. STIVARGA [Suspect]
     Active Substance: REGORAFENIB
     Indication: COLORECTAL CANCER METASTATIC
     Dosage: 160 MG DAILY (4 TABLETS 40 MG)
     Dates: start: 20140423, end: 20140522
  6. NOVAMINSULFON [Concomitant]
     Active Substance: METAMIZOLE
     Dosage: 60 DROPS DAILY
     Dates: start: 20120727
  7. QUERTO [Concomitant]
     Dosage: 50 MG DAILY
     Dates: start: 20140130
  8. ASPIRIN. [Concomitant]
     Active Substance: ASPIRIN
     Dosage: 10 MG DAILY
     Dates: start: 20100101
  9. AMLODIPIN [Concomitant]
     Active Substance: AMLODIPINE BESYLATE
     Dosage: 20 MG DAILY
     Dates: start: 20100101

REACTIONS (1)
  - Myocardial infarction [Fatal]

NARRATIVE: CASE EVENT DATE: 20140826
